FAERS Safety Report 5692864-9 (Version None)
Quarter: 2008Q2

REPORT INFORMATION
  Report Type: 
  Country: None (occurrence: None)
  Receive Date: 20080401
  Receipt Date: 20080315
  Transmission Date: 20081010
  Serious: Yes (Hospitalization, Disabling)
  Sender: FDA-Public Use
  Company Number: ADE2008-0164

PATIENT
  Age: 55 Year
  Sex: Female

DRUGS (7)
  1. METFORMIN HYDROCHLORIDE [Suspect]
     Indication: TYPE 2 DIABETES MELLITUS
     Dosage: 1000MG, DAILY; PO
     Route: 048
     Dates: start: 20071101
  2. METFORMIN HYDROCHLORIDE [Suspect]
     Indication: TYPE 2 DIABETES MELLITUS
     Dosage: 2000MG, 2X DAILY, PO
     Route: 048
     Dates: end: 20071101
  3. AMITRIPTYLINE HCL [Concomitant]
  4. DICLOFENAC SODIUM [Concomitant]
  5. LEVOTHYROXINE SODIUM [Concomitant]
  6. LUMIRACOXIB [Concomitant]
  7. TRAMADOL HCL [Concomitant]

REACTIONS (13)
  - BACTERIAL CULTURE POSITIVE [None]
  - BLINDNESS UNILATERAL [None]
  - COMA [None]
  - CONFUSIONAL STATE [None]
  - DEHYDRATION [None]
  - HAEMODIALYSIS [None]
  - LACTIC ACIDOSIS [None]
  - LOWER RESPIRATORY TRACT INFECTION [None]
  - MALAISE [None]
  - PUPIL FIXED [None]
  - RENAL FAILURE ACUTE [None]
  - SEPSIS [None]
  - VOMITING [None]
